FAERS Safety Report 9131432 (Version 1)
Quarter: 2013Q1

REPORT INFORMATION
  Report Type: Spontaneous
  Country: US (occurrence: US)
  Receive Date: 20130301
  Receipt Date: 20130301
  Transmission Date: 20140127
  Serious: No
  Sender: FDA-Public Use
  Company Number: US-PFIZER INC-2013073224

PATIENT
  Age: 54 Year
  Sex: Female
  Weight: 47.17 kg

DRUGS (3)
  1. CHANTIX [Suspect]
     Indication: SMOKING CESSATION THERAPY
     Dosage: 0.5 MG, 3X/DAY
     Dates: start: 20130223
  2. OXYCODONE [Concomitant]
     Indication: RECTAL CANCER
     Dosage: 10 MG, EVERY 4 HRS
     Dates: start: 2012
  3. OXYCONTIN [Concomitant]
     Indication: RECTAL CANCER
     Dosage: 40 MG, 3X/DAY
     Dates: start: 2012

REACTIONS (1)
  - Gastroenteritis viral [Recovered/Resolved]
